FAERS Safety Report 5108208-7 (Version None)
Quarter: 2006Q3

REPORT INFORMATION
  Report Type: 
  Country: None (occurrence: None)
  Receive Date: 20060919
  Receipt Date: 20060914
  Transmission Date: 20061208
  Serious: Yes (Hospitalization)
  Sender: FDA-Public Use
  Company Number: US-SANOFI-SYNTHELABO-F01200601975

PATIENT
  Sex: Male

DRUGS (4)
  1. LEUCOVORIN CALCIUM [Suspect]
     Route: 042
  2. FLUOROURACIL [Suspect]
     Route: 042
  3. ELOXATIN [Suspect]
     Indication: COLON CANCER
     Route: 042
  4. AVASTIN [Suspect]
     Route: 042

REACTIONS (4)
  - ABDOMINAL DISTENSION [None]
  - DIARRHOEA [None]
  - NAUSEA [None]
  - VOMITING [None]
